FAERS Safety Report 23589041 (Version 2)
Quarter: 2024Q1

REPORT INFORMATION
  Report Type: Report from Study
  Country: US (occurrence: US)
  Receive Date: 20240303
  Receipt Date: 20240318
  Transmission Date: 20240410
  Serious: Yes (Hospitalization, Other)
  Sender: FDA-Public Use
  Company Number: US-AIMMUNE THERAPEUTICS, INC.-2024AIMT00161

PATIENT

DRUGS (3)
  1. VOWST [Suspect]
     Active Substance: DONOR HUMAN STOOL SPORES (ETHANOL TREATED)
     Indication: Clostridium difficile infection
     Dosage: 4 CAPSULES, 1X/DAY, PRIOR TO FIRST MEAL OF THE DAY
     Route: 048
     Dates: start: 20240130, end: 20240201
  2. VOWST [Suspect]
     Active Substance: DONOR HUMAN STOOL SPORES (ETHANOL TREATED)
     Dosage: 4 CAPSULES, 1X/DAY, ONCE, LAST DOSE PRIOR TO EVENT ATE BREAKFAST BEFORE VOWST DOSE
     Route: 048
     Dates: start: 20240131, end: 20240131
  3. VOWST [Suspect]
     Active Substance: DONOR HUMAN STOOL SPORES (ETHANOL TREATED)
     Dosage: 4 CAPSULES, 1X/DAY, ONCE, LAST DOSE PRIOR TO EVENTS C. DIFF INFECTION AND MUCOUS
     Route: 048
     Dates: start: 20240201, end: 20240201

REACTIONS (4)
  - Clostridium difficile infection [Unknown]
  - Blood pressure fluctuation [Unknown]
  - Rectal discharge [Recovered/Resolved]
  - Treatment noncompliance [Unknown]

NARRATIVE: CASE EVENT DATE: 20240201
